FAERS Safety Report 24557180 (Version 1)
Quarter: 2024Q4

REPORT INFORMATION
  Report Type: Spontaneous
  Country: US (occurrence: US)
  Receive Date: 20241028
  Receipt Date: 20241028
  Transmission Date: 20250115
  Serious: Yes (Hospitalization)
  Sender: BEXIMCO PHARMACEUTICALS
  Company Number: US-BEXIMCO-2024BEX00045

PATIENT
  Age: 76 Year
  Sex: Female

DRUGS (2)
  1. BACLOFEN [Suspect]
     Active Substance: BACLOFEN
     Dosage: UNK
  2. TRAMADOL HYDROCHLORIDE [Suspect]
     Active Substance: TRAMADOL HYDROCHLORIDE

REACTIONS (6)
  - Neurotoxicity [Recovered/Resolved]
  - Brain stem syndrome [Recovered/Resolved]
  - Areflexia [Recovered/Resolved]
  - Coma [Recovered/Resolved]
  - Somatosensory evoked potentials abnormal [Recovered/Resolved]
  - Overdose [Unknown]
